FAERS Safety Report 9989328 (Version 1)
Quarter: 2013Q4

REPORT INFORMATION
  Report Type: Spontaneous
  Country: DE (occurrence: None)
  Receive Date: 20131025
  Receipt Date: 20131025
  Transmission Date: 20140711
  Serious: Yes (Hospitalization)
  Sender: FDA-Public Use
  Company Number: DSA_61872_2013

PATIENT
  Age: 77 Year
  Sex: Female

DRUGS (3)
  1. ELONTRIL [Suspect]
     Indication: PRODUCT USED FOR UNKNOWN INDICATION
     Route: 048
  2. VENLAFAXINE HYDROCHLORIDE [Suspect]
     Indication: PRODUCT USED FOR UNKNOWN INDICATION
     Route: 048
  3. INSULIN [Suspect]
     Indication: PRODUCT USED FOR UNKNOWN INDICATION
     Route: 030

REACTIONS (8)
  - Suicide attempt [None]
  - Coma [None]
  - Hypotension [None]
  - Poisoning [None]
  - Blood potassium decreased [None]
  - Gamma-glutamyltransferase increased [None]
  - Electrocardiogram abnormal [None]
  - Vomiting [None]
